FAERS Safety Report 5933011-5 (Version None)
Quarter: 2008Q4

REPORT INFORMATION
  Report Type: 
  Country: None (occurrence: None)
  Receive Date: 20081023
  Receipt Date: 20081010
  Transmission Date: 20090506
  Serious: Yes (Hospitalization)
  Sender: FDA-Public Use
  Company Number: 2008BI027305

PATIENT
  Age: 37 Year
  Sex: Female
  Weight: 58.9676 kg

DRUGS (17)
  1. TYSABRI [Suspect]
     Indication: MULTIPLE SCLEROSIS
     Dosage: 300 MG; QM; IV
     Route: 042
     Dates: start: 20080418
  2. BACLOFEN [Concomitant]
  3. OXYBUTYNIN [Concomitant]
  4. LORTAB [Concomitant]
  5. PREGABALIN [Concomitant]
  6. METHYLPHENIDATE HCL [Concomitant]
  7. ALPRAZOLAM [Concomitant]
  8. TIZANIDINE HCL [Concomitant]
  9. PAROXETINE HCL [Concomitant]
  10. AVONEX [Concomitant]
  11. CHRONIC SYSTEMIC CORTICOSTEROIDS [Concomitant]
  12. IPRATROPIUM BROMIDE [Concomitant]
  13. ALBUTEROL [Concomitant]
  14. COUMADIN [Concomitant]
  15. SILVADENE [Concomitant]
  16. DOCUSATE SODIUM [Concomitant]
  17. LEVAQUIN [Concomitant]

REACTIONS (14)
  - BACTERIAL INFECTION [None]
  - CANDIDIASIS [None]
  - CELLULITIS [None]
  - CULTURE WOUND POSITIVE [None]
  - FURUNCLE [None]
  - INFECTED CYST [None]
  - INTERNATIONAL NORMALISED RATIO INCREASED [None]
  - OSTEOMYELITIS [None]
  - PITTING OEDEMA [None]
  - PROTEIN TOTAL DECREASED [None]
  - PROTHROMBIN TIME PROLONGED [None]
  - SKIN INFECTION [None]
  - STAPHYLOCOCCAL INFECTION [None]
  - URINARY TRACT INFECTION ENTEROCOCCAL [None]
